FAERS Safety Report 17433139 (Version 54)
Quarter: 2024Q4

REPORT INFORMATION
  Report Type: Spontaneous
  Country: CA (occurrence: CA)
  Receive Date: 20200219
  Receipt Date: 20241206
  Transmission Date: 20250115
  Serious: Yes (Death, Life-Threatening, Hospitalization, Disabling, Congenital Anomaly, Other)
  Sender: AMGEN
  Company Number: CA-AMGEN-CANSP2016091942

PATIENT
  Age: 43 Year
  Sex: Female
  Weight: 97 kg

DRUGS (520)
  1. AIMOVIG [Suspect]
     Active Substance: ERENUMAB\ERENUMAB-AOOE
     Indication: Migraine
     Dosage: UNK
     Route: 065
  2. OTEZLA [Suspect]
     Active Substance: APREMILAST
     Indication: Psoriasis
     Dosage: UNK
     Route: 065
  3. OTEZLA [Suspect]
     Active Substance: APREMILAST
     Indication: Rheumatoid arthritis
     Dosage: 3 MILLIGRAM (2 EVERY 1 DAYS)
     Route: 065
  4. OTEZLA [Suspect]
     Active Substance: APREMILAST
     Dosage: 3 MILLIGRAM (1 EVERY 1 DAYS)
     Route: 065
  5. OTEZLA [Suspect]
     Active Substance: APREMILAST
     Dosage: 30 MILLIGRAM (2 EVERY 1 DAYS)
     Route: 065
  6. OTEZLA [Suspect]
     Active Substance: APREMILAST
     Dosage: 3 MILLIGRAM
     Route: 065
  7. OTEZLA [Suspect]
     Active Substance: APREMILAST
     Dosage: 3 MILLIGRAM
     Route: 048
  8. OTEZLA [Suspect]
     Active Substance: APREMILAST
     Dosage: 3 MILLIGRAM (2 EVERY 1 DAYS)
     Route: 048
  9. OTEZLA [Suspect]
     Active Substance: APREMILAST
     Dosage: UNK
     Route: 048
  10. ENBREL [Suspect]
     Active Substance: ETANERCEPT
     Indication: Rheumatoid arthritis
     Dosage: 1 DOSAGE FORM
     Route: 058
  11. ENBREL [Suspect]
     Active Substance: ETANERCEPT
     Indication: Psoriatic arthropathy
     Dosage: UNK
     Route: 058
  12. ENBREL [Suspect]
     Active Substance: ETANERCEPT
     Dosage: 20 MILLIGRAM (1 EVENRY ONE WEEKS)
     Route: 065
  13. ENBREL [Suspect]
     Active Substance: ETANERCEPT
     Dosage: 50 MILLIGRAM (1 EVENRY ONE WEEKS)
     Route: 058
  14. ENBREL [Suspect]
     Active Substance: ETANERCEPT
     Dosage: 20 MILLIGRAM (1 EVENRY ONE WEEKS)
     Route: 058
  15. ENBREL [Suspect]
     Active Substance: ETANERCEPT
     Dosage: 50 MILLIGRAM (2 EVENRY ONE DAYS)
     Route: 058
  16. ENBREL [Suspect]
     Active Substance: ETANERCEPT
     Dosage: 50 MILLIGRAM
     Route: 058
  17. ENBREL [Suspect]
     Active Substance: ETANERCEPT
     Dosage: UNK
     Route: 061
  18. ENBREL [Suspect]
     Active Substance: ETANERCEPT
     Dosage: UNK
     Route: 065
  19. ENBREL [Suspect]
     Active Substance: ETANERCEPT
     Dosage: UNK
     Route: 048
  20. ENBREL [Suspect]
     Active Substance: ETANERCEPT
     Dosage: 90 MILLIGRAM
     Route: 058
  21. ENBREL [Suspect]
     Active Substance: ETANERCEPT
     Dosage: 20 MILLIGRAM, QWK
     Route: 058
  22. ENBREL [Suspect]
     Active Substance: ETANERCEPT
     Dosage: 20 MILLIGRAM, QD
     Route: 058
  23. ENBREL [Suspect]
     Active Substance: ETANERCEPT
     Dosage: 20 MILLIGRAM, Q2WK
     Route: 058
  24. ENBREL [Suspect]
     Active Substance: ETANERCEPT
     Dosage: UNK UNK, QWK
     Route: 065
  25. ETANERCEPT [Suspect]
     Active Substance: ETANERCEPT
     Indication: Rheumatoid arthritis
     Dosage: 50 MILLIGRAM, QWK
     Route: 058
  26. ADALIMUMAB [Suspect]
     Active Substance: ADALIMUMAB
     Indication: Rheumatoid arthritis
     Dosage: 40 MILLIGRAM
     Route: 048
  27. ADALIMUMAB [Suspect]
     Active Substance: ADALIMUMAB
     Dosage: 40 MILLIGRAM, QWK
     Route: 058
  28. ADALIMUMAB [Suspect]
     Active Substance: ADALIMUMAB
     Dosage: 40 MILLIGRAM, Q2WK
     Route: 058
  29. ADALIMUMAB [Suspect]
     Active Substance: ADALIMUMAB
     Dosage: 40 MILLIGRAM
     Route: 058
  30. ADALIMUMAB [Suspect]
     Active Substance: ADALIMUMAB
     Dosage: 20 MILLIGRAM (SOLUTION SUBCUTANEOUS)
     Route: 065
  31. ADALIMUMAB [Suspect]
     Active Substance: ADALIMUMAB
     Dosage: 4 MILLIGRAM
     Route: 058
  32. INFLIXIMAB [Suspect]
     Active Substance: INFLIXIMAB
     Indication: Rheumatoid arthritis
     Dosage: UNK
     Route: 065
  33. INFLIXIMAB [Suspect]
     Active Substance: INFLIXIMAB
     Indication: Psoriatic arthropathy
     Dosage: POWDER FOR SOLUTION FOR INFUSION
     Route: 040
  34. INFLIXIMAB [Suspect]
     Active Substance: INFLIXIMAB
     Indication: Colitis ulcerative
     Dosage: 500 MILLIGRAM
     Route: 040
  35. INFLIXIMAB [Suspect]
     Active Substance: INFLIXIMAB
     Dosage: 400 MILLIGRAM
     Route: 040
  36. INFLIXIMAB [Suspect]
     Active Substance: INFLIXIMAB
     Dosage: 400 MILLIGRAM
     Route: 065
  37. INFLIXIMAB [Suspect]
     Active Substance: INFLIXIMAB
     Dosage: UNK
     Route: 040
  38. APREMILAST [Suspect]
     Active Substance: APREMILAST
     Indication: Product used for unknown indication
     Dosage: 3 MILLIGRAM
     Route: 065
  39. RITUXIMAB [Suspect]
     Active Substance: RITUXIMAB
     Indication: Rheumatoid arthritis
     Dosage: 1 MILLIGRAM (INTRAVENOUS NOT OTHERWISE SPECIFIED)
     Route: 040
  40. RITUXIMAB [Suspect]
     Active Substance: RITUXIMAB
     Indication: Abdominal discomfort
     Dosage: UNK (CONCENTRATION FOR SOLUTION FOR INFUSION)
     Route: 058
  41. RITUXIMAB [Suspect]
     Active Substance: RITUXIMAB
     Dosage: UNK
     Route: 040
  42. RITUXIMAB [Suspect]
     Active Substance: RITUXIMAB
     Dosage: 365 MILLIGRAM CONCENTRATION FOR SOLUTION FOR INFUSION)
     Route: 040
  43. RITUXIMAB [Suspect]
     Active Substance: RITUXIMAB
     Dosage: 5 MILLIGRAM
     Route: 048
  44. RITUXIMAB [Suspect]
     Active Substance: RITUXIMAB
     Dosage: 25 MILLIGRAM
     Route: 048
  45. RITUXIMAB [Suspect]
     Active Substance: RITUXIMAB
     Dosage: 40 MILLIGRAM
     Route: 048
  46. RITUXIMAB [Suspect]
     Active Substance: RITUXIMAB
     Dosage: UNK
     Route: 048
  47. RITUXIMAB [Suspect]
     Active Substance: RITUXIMAB
     Dosage: UNK
     Route: 058
  48. RITUXIMAB [Suspect]
     Active Substance: RITUXIMAB
     Dosage: 1 MILLIGRAM
     Route: 040
  49. RITUXIMAB [Suspect]
     Active Substance: RITUXIMAB
     Dosage: UNK (SOLUTION)
     Route: 040
  50. RITUXIMAB [Suspect]
     Active Substance: RITUXIMAB
     Dosage: UNK
     Route: 065
  51. RITUXIMAB [Suspect]
     Active Substance: RITUXIMAB
     Dosage: UNK
     Route: 065
  52. RITUXIMAB [Suspect]
     Active Substance: RITUXIMAB
     Dosage: UNK
     Route: 058
  53. COSENTYX [Suspect]
     Active Substance: SECUKINUMAB
     Indication: Psoriatic arthropathy
     Dosage: UNK (ENDOCERCICAL)
     Route: 065
  54. COSENTYX [Suspect]
     Active Substance: SECUKINUMAB
     Indication: Rheumatoid arthritis
     Dosage: UNK
     Route: 048
  55. COSENTYX [Suspect]
     Active Substance: SECUKINUMAB
     Dosage: UNK
     Route: 040
  56. COSENTYX [Suspect]
     Active Substance: SECUKINUMAB
     Dosage: UNK
     Route: 065
  57. VOLTAREN [Suspect]
     Active Substance: DICLOFENAC SODIUM
     Indication: Product used for unknown indication
     Dosage: UNK
     Route: 065
  58. DICLOFENAC SODIUM [Suspect]
     Active Substance: DICLOFENAC SODIUM
     Indication: Rheumatoid arthritis
     Dosage: 50 MILLIGRAM
     Route: 065
  59. DICLOFENAC SODIUM [Suspect]
     Active Substance: DICLOFENAC SODIUM
     Indication: Osteoarthritis
     Dosage: UNK
     Route: 058
  60. DICLOFENAC SODIUM [Suspect]
     Active Substance: DICLOFENAC SODIUM
     Indication: Inflammation
     Dosage: UNK
     Route: 065
  61. DICLOFENAC SODIUM [Suspect]
     Active Substance: DICLOFENAC SODIUM
     Dosage: UNK (OPTHALMIC)
     Route: 065
  62. DICLOFENAC SODIUM [Suspect]
     Active Substance: DICLOFENAC SODIUM
     Dosage: UNK
     Route: 048
  63. DICLOFENAC SODIUM [Suspect]
     Active Substance: DICLOFENAC SODIUM
     Dosage: 100 MILLIGRAM
     Route: 065
  64. DICLOFENAC SODIUM [Suspect]
     Active Substance: DICLOFENAC SODIUM
     Dosage: 500 MILLIGRAM
     Route: 065
  65. DICLOFENAC SODIUM [Suspect]
     Active Substance: DICLOFENAC SODIUM
     Dosage: 50 MILLIGRAM (2 EVERY 1 DAYS)
     Route: 065
  66. DICLOFENAC SODIUM [Suspect]
     Active Substance: DICLOFENAC SODIUM
     Dosage: OPTHALMIC
     Route: 065
  67. DICLOFENAC POTASSIUM [Suspect]
     Active Substance: DICLOFENAC POTASSIUM
     Indication: Product used for unknown indication
     Dosage: UNK
     Route: 065
  68. DICLOFENAC POTASSIUM [Suspect]
     Active Substance: DICLOFENAC POTASSIUM
     Indication: Rheumatoid arthritis
     Dosage: UNK
     Route: 065
  69. DICLOFENAC POTASSIUM [Suspect]
     Active Substance: DICLOFENAC POTASSIUM
     Dosage: FILM COATED TABLET
     Route: 050
  70. DICLOFENAC POTASSIUM [Suspect]
     Active Substance: DICLOFENAC POTASSIUM
     Dosage: FILM COATED TABLET
     Route: 065
  71. DICLOFENAC POTASSIUM [Suspect]
     Active Substance: DICLOFENAC POTASSIUM
     Dosage: TABLET
     Route: 048
  72. DICLOFENAC POTASSIUM [Suspect]
     Active Substance: DICLOFENAC POTASSIUM
     Dosage: 50 MILLIGRAM
     Route: 048
  73. LEFLUNOMIDE [Suspect]
     Active Substance: LEFLUNOMIDE
     Indication: Rheumatoid arthritis
     Dosage: 20 MILLIGRAM, QD
     Route: 048
  74. LEFLUNOMIDE [Suspect]
     Active Substance: LEFLUNOMIDE
     Dosage: UNK
     Route: 065
  75. LEFLUNOMIDE [Suspect]
     Active Substance: LEFLUNOMIDE
     Dosage: UNK
     Route: 048
  76. LEFLUNOMIDE [Suspect]
     Active Substance: LEFLUNOMIDE
     Dosage: 10 UNK
     Route: 065
  77. LEFLUNOMIDE [Suspect]
     Active Substance: LEFLUNOMIDE
     Dosage: 20 MILLIGRAM, QD
     Route: 065
  78. LEFLUNOMIDE [Suspect]
     Active Substance: LEFLUNOMIDE
     Dosage: 20 MILLIGRAM, FILM COATED TABLET
     Route: 048
  79. LEFLUNOMIDE [Suspect]
     Active Substance: LEFLUNOMIDE
     Dosage: 1 MILLIGRAM, FILM COATED TABLET
     Route: 048
  80. LEFLUNOMIDE [Suspect]
     Active Substance: LEFLUNOMIDE
     Dosage: 20 MILLIGRAM
     Route: 065
  81. LEFLUNOMIDE [Suspect]
     Active Substance: LEFLUNOMIDE
     Dosage: 20 MILLIGRAM (1 EVERY 1 DAYS)
     Route: 065
  82. LEFLUNOMIDE [Suspect]
     Active Substance: LEFLUNOMIDE
     Dosage: 20 MILLIGRAM
     Route: 048
  83. LEFLUNOMIDE [Suspect]
     Active Substance: LEFLUNOMIDE
     Dosage: 10 DOSAGE FORM
     Route: 048
  84. DICLOFENAC [Suspect]
     Active Substance: DICLOFENAC
     Indication: Rheumatoid arthritis
     Dosage: UNK
     Route: 065
  85. DICLOFENAC [Suspect]
     Active Substance: DICLOFENAC
     Dosage: 50 MILLIGRAM
     Route: 065
  86. DICLOFENAC [Suspect]
     Active Substance: DICLOFENAC
     Dosage: 50 MILLIGRAM, OPTHALMIC
     Route: 065
  87. ERELZI [Suspect]
     Active Substance: ETANERCEPT-SZZS
     Indication: Rheumatoid arthritis
     Dosage: 50 MILLIGRAM
     Route: 065
  88. ERELZI [Suspect]
     Active Substance: ETANERCEPT-SZZS
     Dosage: UNK
     Route: 058
  89. ERELZI [Suspect]
     Active Substance: ETANERCEPT-SZZS
     Dosage: 50 MILLIGRAM
     Route: 058
  90. ERELZI [Suspect]
     Active Substance: ETANERCEPT-SZZS
     Dosage: 50 MILLIGRAM (1 EVERY 1 WEEK)
     Route: 058
  91. ERELZI [Suspect]
     Active Substance: ETANERCEPT-SZZS
     Dosage: UNK
     Route: 065
  92. ERELZI [Suspect]
     Active Substance: ETANERCEPT-SZZS
     Dosage: 20 MILLIGRAM (1 EVERY 1 WEEK))
     Route: 058
  93. MYCOPHENOLATE MOFETIL [Suspect]
     Active Substance: MYCOPHENOLATE MOFETIL
     Indication: Rheumatoid arthritis
     Dosage: UNK
     Route: 065
  94. OXYCODONE [Suspect]
     Active Substance: OXYCODONE
     Indication: Product used for unknown indication
     Dosage: UNK
     Route: 065
  95. CALCIUM [Suspect]
     Active Substance: CALCIUM
     Indication: Product used for unknown indication
     Dosage: UNK
     Route: 065
  96. CALTRATE WITH VITAMIN D [Suspect]
     Active Substance: CALCIUM CARBONATE\CHOLECALCIFEROL
     Indication: Product used for unknown indication
     Route: 065
  97. CALTRATE WITH VITAMIN D [Suspect]
     Active Substance: CALCIUM CARBONATE\CHOLECALCIFEROL
     Dosage: UNK
     Route: 016
  98. DOXYCYCLINE HYCLATE [Suspect]
     Active Substance: DOXYCYCLINE HYCLATE
     Indication: Rheumatoid arthritis
     Dosage: 40 MILLIGRAM
     Route: 065
  99. DOXYCYCLINE HYCLATE [Suspect]
     Active Substance: DOXYCYCLINE HYCLATE
     Dosage: UNK
     Route: 058
  100. PREGABALIN [Suspect]
     Active Substance: PREGABALIN
     Indication: Product used for unknown indication
     Route: 065
  101. SULFAMETHOXAZOLE\TRIMETHOPRIM [Suspect]
     Active Substance: SULFAMETHOXAZOLE\TRIMETHOPRIM
     Indication: Product used for unknown indication
     Dosage: UNK
     Route: 065
  102. SULFAMETHOXAZOLE\TRIMETHOPRIM [Suspect]
     Active Substance: SULFAMETHOXAZOLE\TRIMETHOPRIM
     Dosage: UNK
     Route: 065
  103. HYALURONIDASE (HUMAN RECOMBINANT) [Suspect]
     Active Substance: HYALURONIDASE (HUMAN RECOMBINANT)
     Indication: Rheumatoid arthritis
     Dosage: UNK
     Route: 058
  104. HYALURONIDASE (HUMAN RECOMBINANT) [Suspect]
     Active Substance: HYALURONIDASE (HUMAN RECOMBINANT)
     Dosage: UNK
     Route: 042
  105. HYALURONIDASE (HUMAN RECOMBINANT) [Suspect]
     Active Substance: HYALURONIDASE (HUMAN RECOMBINANT)
     Dosage: UNK
     Route: 042
  106. ACETAMINOPHEN [Suspect]
     Active Substance: ACETAMINOPHEN
     Indication: Rheumatoid arthritis
     Dosage: UNK
     Route: 048
  107. ACETAMINOPHEN [Suspect]
     Active Substance: ACETAMINOPHEN
     Dosage: 20 MILLIGRAM
     Route: 048
  108. ACETAMINOPHEN [Suspect]
     Active Substance: ACETAMINOPHEN
     Dosage: 10 MILLIGRAM
     Route: 048
  109. ACETAMINOPHEN [Suspect]
     Active Substance: ACETAMINOPHEN
     Dosage: UNK
     Route: 065
  110. ACTEMRA [Suspect]
     Active Substance: TOCILIZUMAB
     Indication: Rheumatoid arthritis
     Dosage: UNK
     Route: 016
  111. ACTEMRA [Suspect]
     Active Substance: TOCILIZUMAB
     Dosage: UNK
     Route: 058
  112. ACTEMRA [Suspect]
     Active Substance: TOCILIZUMAB
     Dosage: 728.0 MILLIGRAM
     Route: 058
  113. ACTEMRA [Suspect]
     Active Substance: TOCILIZUMAB
     Dosage: 752.8 MILLIGRAM (NOT OTHERWISE SPECIFIED)
     Route: 040
  114. ACTEMRA [Suspect]
     Active Substance: TOCILIZUMAB
     Dosage: 728.0 MILLIGRAM
     Route: 040
  115. ACTEMRA [Suspect]
     Active Substance: TOCILIZUMAB
     Dosage: 472 MILLIGRAM (INTRAVENOUS (NOT OTHERWISE SECIFIED))
     Route: 065
  116. ACTEMRA [Suspect]
     Active Substance: TOCILIZUMAB
     Dosage: 488 MILLIGRAM  (NOT OTHERWISE SECIFIED))
     Route: 065
  117. ACTEMRA [Suspect]
     Active Substance: TOCILIZUMAB
     Dosage: UNK (NOT OTHERWISE SECIFIED))
     Route: 065
  118. ACTEMRA [Suspect]
     Active Substance: TOCILIZUMAB
     Dosage: 480 MILLIGRAM
     Route: 065
  119. ACTEMRA [Suspect]
     Active Substance: TOCILIZUMAB
     Dosage: 540 MILLIGRAM  (NOT OTHERWISE SECIFIED))
     Route: 065
  120. ACTEMRA [Suspect]
     Active Substance: TOCILIZUMAB
     Dosage: 2912.0 MILLIGRAM
     Route: 040
  121. ACTEMRA [Suspect]
     Active Substance: TOCILIZUMAB
     Dosage: 3011.2 MILLIGRAM
     Route: 040
  122. ACTEMRA [Suspect]
     Active Substance: TOCILIZUMAB
     Dosage: 20 MILLIGRAM
     Route: 048
  123. ACTEMRA [Suspect]
     Active Substance: TOCILIZUMAB
     Dosage: UNK
     Route: 016
  124. ACTEMRA [Suspect]
     Active Substance: TOCILIZUMAB
     Dosage: 2912.0 MILLIGRAM
     Route: 058
  125. ACTEMRA [Suspect]
     Active Substance: TOCILIZUMAB
     Dosage: UNK
     Route: 065
  126. ACTEMRA [Suspect]
     Active Substance: TOCILIZUMAB
     Dosage: 752.8 MILLIGRAM
     Route: 040
  127. ACTEMRA [Suspect]
     Active Substance: TOCILIZUMAB
     Dosage: 728.8 MILLIGRAM, QMO
     Route: 040
  128. ACTEMRA [Suspect]
     Active Substance: TOCILIZUMAB
     Dosage: 3011.0 MILLIGRAM
     Route: 040
  129. ACTEMRA [Suspect]
     Active Substance: TOCILIZUMAB
     Dosage: UNK
     Route: 061
  130. ACTEMRA [Suspect]
     Active Substance: TOCILIZUMAB
     Dosage: 5 MILLIGRAM
     Route: 061
  131. ACTEMRA [Suspect]
     Active Substance: TOCILIZUMAB
     Dosage: 2912.0 MILLIGRAM
     Route: 040
  132. ALENDRONATE SODIUM [Suspect]
     Active Substance: ALENDRONATE SODIUM
     Indication: Rheumatoid arthritis
     Dosage: UNK
     Route: 016
  133. ALENDRONATE SODIUM [Suspect]
     Active Substance: ALENDRONATE SODIUM
     Dosage: UNK
     Route: 065
  134. ALENDRONATE SODIUM [Suspect]
     Active Substance: ALENDRONATE SODIUM
     Dosage: 40 MILLIGRAM
     Route: 058
  135. ALENDRONATE SODIUM [Suspect]
     Active Substance: ALENDRONATE SODIUM
     Dosage: UNK
     Route: 048
  136. ALENDRONATE SODIUM [Suspect]
     Active Substance: ALENDRONATE SODIUM
     Dosage: 2000 MILLIGRAM
     Route: 048
  137. ALENDRONATE SODIUM [Suspect]
     Active Substance: ALENDRONATE SODIUM
     Dosage: 20 MILLIGRAM
     Route: 065
  138. ALENDRONIC ACID [Suspect]
     Active Substance: ALENDRONIC ACID
     Indication: Rheumatoid arthritis
     Dosage: UNK
     Route: 048
  139. ALENDRONIC ACID [Suspect]
     Active Substance: ALENDRONIC ACID
     Dosage: UNK
     Route: 065
  140. ALENDRONIC ACID [Suspect]
     Active Substance: ALENDRONIC ACID
     Dosage: UNK
     Route: 016
  141. ALENDRONIC ACID [Suspect]
     Active Substance: ALENDRONIC ACID
     Dosage: 20 MILLIGRAM
     Route: 048
  142. PANTOPRAZOLE SODIUM ANHYDROUS [Suspect]
     Active Substance: PANTOPRAZOLE SODIUM ANHYDROUS
     Indication: Product used for unknown indication
     Dosage: UNK
     Route: 065
  143. PANTOPRAZOLE SODIUM ANHYDROUS [Suspect]
     Active Substance: PANTOPRAZOLE SODIUM ANHYDROUS
     Dosage: UNK
     Route: 016
  144. DICLOFENAC [Suspect]
     Active Substance: DICLOFENAC
     Indication: Rheumatoid arthritis
     Dosage: 50 MILLIGRAM (TABLET ENTERIC COATED)
     Route: 065
  145. DICLOFENAC [Suspect]
     Active Substance: DICLOFENAC
     Dosage: UNK
     Route: 065
  146. PREDNISONE [Suspect]
     Active Substance: PREDNISONE
     Indication: Rheumatoid arthritis
     Dosage: UNK
     Route: 048
  147. PREDNISONE [Suspect]
     Active Substance: PREDNISONE
     Dosage: 5 MILLIGRAM
     Route: 065
  148. PREDNISONE [Suspect]
     Active Substance: PREDNISONE
     Dosage: 40 MILLIGRAM
     Route: 065
  149. PREDNISONE [Suspect]
     Active Substance: PREDNISONE
     Dosage: UNK
     Route: 065
  150. PREDNISONE [Suspect]
     Active Substance: PREDNISONE
     Dosage: UNK
     Route: 040
  151. PREDNISONE [Suspect]
     Active Substance: PREDNISONE
     Dosage: 7.5 MILLIGRAM
     Route: 048
  152. PREDNISONE [Suspect]
     Active Substance: PREDNISONE
     Dosage: 40 MILLIGRAM
     Route: 048
  153. ARAVA [Suspect]
     Active Substance: LEFLUNOMIDE
     Indication: Rheumatoid arthritis
     Dosage: UNK(ENDOCERVICAL)
     Route: 065
  154. ARAVA [Suspect]
     Active Substance: LEFLUNOMIDE
     Dosage: 10 MILLIGRAM
     Route: 065
  155. ARAVA [Suspect]
     Active Substance: LEFLUNOMIDE
     Dosage: 20 MILLIGRAM
     Route: 048
  156. ARAVA [Suspect]
     Active Substance: LEFLUNOMIDE
     Dosage: UNK
     Route: 065
  157. ARAVA [Suspect]
     Active Substance: LEFLUNOMIDE
     Dosage: 20 MILLIGRAM
     Route: 065
  158. ARAVA [Suspect]
     Active Substance: LEFLUNOMIDE
     Dosage: UNK
     Route: 048
  159. ARAVA [Suspect]
     Active Substance: LEFLUNOMIDE
     Dosage: 20 MILLIGRAM, QD
     Route: 048
  160. ARAVA [Suspect]
     Active Substance: LEFLUNOMIDE
     Dosage: 1 DOSAGE FORM
     Route: 048
  161. ASACOL [Suspect]
     Active Substance: MESALAMINE
     Indication: Rheumatoid arthritis
     Dosage: TABLET (ENTERIC-COATED)
     Route: 065
  162. ATIVAN [Suspect]
     Active Substance: LORAZEPAM
     Indication: Rheumatoid arthritis
     Dosage: UNK
     Route: 065
  163. ATIVAN [Suspect]
     Active Substance: LORAZEPAM
     Indication: Anxiety
  164. AZATHIOPRINE [Suspect]
     Active Substance: AZATHIOPRINE
     Indication: Rheumatoid arthritis
     Dosage: UNK
     Route: 058
  165. AZATHIOPRINE [Suspect]
     Active Substance: AZATHIOPRINE
     Dosage: UNK
     Route: 065
  166. CAFFEINE [Suspect]
     Active Substance: CAFFEINE
     Indication: Rheumatoid arthritis
     Dosage: UNK
     Route: 065
  167. CAFFEINE [Suspect]
     Active Substance: CAFFEINE
     Indication: Product used for unknown indication
  168. CAFFEINE CITRATE [Suspect]
     Active Substance: CAFFEINE CITRATE
     Indication: Product used for unknown indication
     Dosage: UNK
     Route: 048
  169. AMINOSALICYLATE CALCIUM [Suspect]
     Active Substance: AMINOSALICYLATE CALCIUM
     Indication: Product used for unknown indication
     Dosage: UNK
     Route: 065
  170. CALCIUM CARBONATE [Suspect]
     Active Substance: CALCIUM CARBONATE
     Indication: Product used for unknown indication
     Dosage: UNK
     Route: 065
  171. CALCIUM GLUBIONATE [Suspect]
     Active Substance: CALCIUM GLUBIONATE
     Indication: Product used for unknown indication
     Dosage: UNK
     Route: 016
  172. CALCIUM GLUBIONATE [Suspect]
     Active Substance: CALCIUM GLUBIONATE
     Dosage: UNK
     Route: 065
  173. CALCIUM LACTATE [Suspect]
     Active Substance: CALCIUM LACTATE
     Indication: Product used for unknown indication
     Dosage: UNK
     Route: 065
  174. CELEBREX [Suspect]
     Active Substance: CELECOXIB
     Indication: Rheumatoid arthritis
     Dosage: UNK(1 EVERY 1 DAY)
     Route: 048
  175. CELEBREX [Suspect]
     Active Substance: CELECOXIB
     Indication: Arthritis
     Dosage: 200 MILLIGRAM
     Route: 065
  176. CELEBREX [Suspect]
     Active Substance: CELECOXIB
     Dosage: 2 DOSAGE FORM
     Route: 048
  177. CELEBREX [Suspect]
     Active Substance: CELECOXIB
     Dosage: UNK (1 EVERY 1 DAY)
     Route: 048
  178. CELEBREX [Suspect]
     Active Substance: CELECOXIB
     Dosage: UNK
     Route: 048
  179. CELEBREX [Suspect]
     Active Substance: CELECOXIB
     Dosage: 7.5 MILLIGRAM
     Route: 048
  180. CELEBREX [Suspect]
     Active Substance: CELECOXIB
     Dosage: 20 MILLIGRAM
     Route: 065
  181. CELEBREX [Suspect]
     Active Substance: CELECOXIB
     Dosage: UNK
     Route: 065
  182. CETIRIZINE [Suspect]
     Active Substance: CETIRIZINE HYDROCHLORIDE
     Indication: Rheumatoid arthritis
     Dosage: UNK
     Route: 016
  183. CETIRIZINE [Suspect]
     Active Substance: CETIRIZINE HYDROCHLORIDE
     Dosage: 25 MILLIGRAM
     Route: 048
  184. CETIRIZINE [Suspect]
     Active Substance: CETIRIZINE HYDROCHLORIDE
     Dosage: UNK
     Route: 048
  185. CETIRIZINE [Suspect]
     Active Substance: CETIRIZINE HYDROCHLORIDE
     Dosage: 10 MILLIGRAM
     Route: 048
  186. CETIRIZINE [Suspect]
     Active Substance: CETIRIZINE HYDROCHLORIDE
     Dosage: 10 MILLIGRAM
     Route: 016
  187. CETIRIZINE [Suspect]
     Active Substance: CETIRIZINE HYDROCHLORIDE
     Dosage: 10 MILLIGRAM, QD
     Route: 065
  188. CETIRIZINE [Suspect]
     Active Substance: CETIRIZINE HYDROCHLORIDE
     Dosage: 10 MILLIGRAM
     Route: 065
  189. CETIRIZINE [Suspect]
     Active Substance: CETIRIZINE HYDROCHLORIDE
     Dosage: 25 MILLIGRAM
     Route: 065
  190. CETIRIZINE [Suspect]
     Active Substance: CETIRIZINE HYDROCHLORIDE
     Dosage: 10 MILLIGRAM
     Route: 061
  191. CETIRIZINE [Suspect]
     Active Substance: CETIRIZINE HYDROCHLORIDE
     Dosage: UNK
     Route: 065
  192. CETIRIZINE [Suspect]
     Active Substance: CETIRIZINE HYDROCHLORIDE
     Dosage: 20 MILLIGRAM
     Route: 065
  193. CHLORAPREP [Suspect]
     Active Substance: CHLORHEXIDINE GLUCONATE\ISOPROPYL ALCOHOL
     Indication: Rheumatoid arthritis
     Dosage: 1 GRAM
     Route: 065
  194. CHLORAPREP [Suspect]
     Active Substance: CHLORHEXIDINE GLUCONATE\ISOPROPYL ALCOHOL
     Dosage: UNK
     Route: 061
  195. CHLORAPREP [Suspect]
     Active Substance: CHLORHEXIDINE GLUCONATE\ISOPROPYL ALCOHOL
     Dosage: UNK
     Route: 065
  196. CHLORAPREP [Suspect]
     Active Substance: CHLORHEXIDINE GLUCONATE\ISOPROPYL ALCOHOL
     Dosage: UNK
     Route: 048
  197. CHLORHEXIDINE GLUCONATE\ISOPROPYL ALCOHOL [Suspect]
     Active Substance: CHLORHEXIDINE GLUCONATE\ISOPROPYL ALCOHOL
     Indication: Product used for unknown indication
     Dosage: UNK
     Route: 065
  198. CHLORHEXIDINE GLUCONATE\ISOPROPYL ALCOHOL [Suspect]
     Active Substance: CHLORHEXIDINE GLUCONATE\ISOPROPYL ALCOHOL
     Dosage: UNK
     Route: 002
  199. CHOLECALCIFEROL [Suspect]
     Active Substance: CHOLECALCIFEROL
     Indication: Rheumatoid arthritis
     Dosage: UNK
     Route: 065
  200. CHOLECALCIFEROL [Suspect]
     Active Substance: CHOLECALCIFEROL
     Dosage: UNK
     Route: 016
  201. CIMZIA [Suspect]
     Active Substance: CERTOLIZUMAB PEGOL
     Indication: Rheumatoid arthritis
     Dosage: UNK
     Route: 065
  202. CIMZIA [Suspect]
     Active Substance: CERTOLIZUMAB PEGOL
     Indication: Psoriasis
     Dosage: 400 MILLIGRAM
     Route: 058
  203. CIMZIA [Suspect]
     Active Substance: CERTOLIZUMAB PEGOL
     Dosage: UNK (ENDOCERVICAL)
     Route: 065
  204. CIMZIA [Suspect]
     Active Substance: CERTOLIZUMAB PEGOL
     Dosage: 2 DOSAGE FORM
     Route: 058
  205. CIMZIA [Suspect]
     Active Substance: CERTOLIZUMAB PEGOL
     Dosage: 2 DOSAGE FORM
     Route: 065
  206. CIMZIA [Suspect]
     Active Substance: CERTOLIZUMAB PEGOL
     Dosage: UNK
     Route: 058
  207. CIMZIA [Suspect]
     Active Substance: CERTOLIZUMAB PEGOL
     Dosage: UNK
     Route: 040
  208. CODEINE [Suspect]
     Active Substance: CODEINE
     Indication: Rheumatoid arthritis
     Dosage: UNK
     Route: 065
  209. CODEINE [Suspect]
     Active Substance: CODEINE
     Dosage: UNK
     Route: 065
  210. CORTISONE [Suspect]
     Active Substance: CORTISONE
     Indication: Rheumatoid arthritis
     Dosage: UNK
     Route: 048
  211. CORTISONE [Suspect]
     Active Substance: CORTISONE
     Dosage: UNK
     Route: 065
  212. CORTISONE [Suspect]
     Active Substance: CORTISONE
     Dosage: UNK
     Route: 058
  213. CORTISONE [Suspect]
     Active Substance: CORTISONE
     Dosage: 25 MILLIGRAM
     Route: 048
  214. CORTISONE [Suspect]
     Active Substance: CORTISONE
     Dosage: 25 MILLIGRAM
     Route: 058
  215. CORTISONE [Suspect]
     Active Substance: CORTISONE
     Dosage: 25 MILLIGRAM
     Route: 065
  216. CORTISONE [Suspect]
     Active Substance: CORTISONE
     Dosage: UNK
     Route: 061
  217. CORTISONE [Suspect]
     Active Substance: CORTISONE
     Dosage: UNK (CUTANEOUS)
     Route: 065
  218. CORTISONE [Suspect]
     Active Substance: CORTISONE
     Dosage: UNK (CUTANEOUS)
     Route: 065
  219. CORTISONE [Suspect]
     Active Substance: CORTISONE
     Dosage: 25 MILLIGRAM
     Route: 065
  220. CORTISONE [Suspect]
     Active Substance: CORTISONE
     Dosage: UNK
     Route: 065
  221. CORTISONE [Suspect]
     Active Substance: CORTISONE
     Dosage: 25 MILLIGRAM
     Route: 048
  222. CORTISONE [Suspect]
     Active Substance: CORTISONE
     Dosage: 25 MILLIGRAM
     Route: 061
  223. CORTISONE [Suspect]
     Active Substance: CORTISONE
     Dosage: 25 MILLIGRAM, Q2WK
     Route: 061
  224. DESOXIMETASONE [Suspect]
     Active Substance: DESOXIMETASONE
     Indication: Rheumatoid arthritis
     Dosage: UNK(CUTANEOUS)
     Route: 065
  225. DESOXIMETASONE [Suspect]
     Active Substance: DESOXIMETASONE
     Dosage: UNK
     Route: 048
  226. DESOXIMETASONE [Suspect]
     Active Substance: DESOXIMETASONE
     Dosage: UNK (INTRACARDIC)
     Route: 065
  227. DESOXIMETASONE [Suspect]
     Active Substance: DESOXIMETASONE
     Dosage: 25 MILLIGRAM
     Route: 065
  228. DESOXIMETASONE [Suspect]
     Active Substance: DESOXIMETASONE
     Dosage: UNK
     Route: 065
  229. DESOXIMETASONE [Suspect]
     Active Substance: DESOXIMETASONE
     Dosage: UNK
     Route: 065
  230. DESOXIMETASONE [Suspect]
     Active Substance: DESOXIMETASONE
     Dosage: 5 MILLIGRAM
     Route: 065
  231. DESOXIMETASONE [Suspect]
     Active Substance: DESOXIMETASONE
     Dosage: UNK
     Route: 065
  232. DESOXIMETASONE [Suspect]
     Active Substance: DESOXIMETASONE
     Dosage: UNK
     Route: 065
  233. DESOXIMETASONE [Suspect]
     Active Substance: DESOXIMETASONE
     Dosage: UNK
     Route: 065
  234. DESOXIMETASONE [Suspect]
     Active Substance: DESOXIMETASONE
     Dosage: UNK (INTRACARDIC)
     Route: 065
  235. DESOXIMETASONE [Suspect]
     Active Substance: DESOXIMETASONE
     Dosage: 25 MILLIGRAM
     Route: 048
  236. DESOXIMETASONE [Suspect]
     Active Substance: DESOXIMETASONE
     Dosage: UNK
     Route: 065
  237. DESOXIMETASONE [Suspect]
     Active Substance: DESOXIMETASONE
     Dosage: UNK
     Route: 067
  238. DESOXIMETASONE [Suspect]
     Active Substance: DESOXIMETASONE
     Dosage: UNK
     Route: 058
  239. DESOXIMETASONE [Suspect]
     Active Substance: DESOXIMETASONE
     Dosage: UNK (CUTANEOUS)
     Route: 065
  240. DESOXIMETASONE [Suspect]
     Active Substance: DESOXIMETASONE
     Dosage: 25 MILLIGRAM
     Route: 065
  241. DESOXIMETASONE [Suspect]
     Active Substance: DESOXIMETASONE
     Dosage: 25 MILLIGRAM
     Route: 048
  242. DESOXIMETASONE [Suspect]
     Active Substance: DESOXIMETASONE
     Dosage: UNK (CUTANEOUS)
     Route: 065
  243. DESOXIMETASONE [Suspect]
     Active Substance: DESOXIMETASONE
     Dosage: UNK
     Route: 048
  244. DESOXIMETASONE [Suspect]
     Active Substance: DESOXIMETASONE
     Dosage: 728.8 MILLIGRAM
     Route: 065
  245. DESOXIMETASONE [Suspect]
     Active Substance: DESOXIMETASONE
     Dosage: UNK
     Route: 067
  246. DESOXIMETASONE [Suspect]
     Active Substance: DESOXIMETASONE
     Dosage: UNK
     Route: 067
  247. DESOXIMETASONE [Suspect]
     Active Substance: DESOXIMETASONE
     Dosage: UNK (CUTANEOUS)
     Route: 065
  248. DESOXIMETASONE [Suspect]
     Active Substance: DESOXIMETASONE
     Dosage: 25 MILLIGRAM
     Route: 048
  249. DESOXIMETASONE [Suspect]
     Active Substance: DESOXIMETASONE
     Dosage: 10 MILLIGRAM
     Route: 048
  250. DESOXIMETASONE [Suspect]
     Active Substance: DESOXIMETASONE
     Dosage: UNK
     Route: 058
  251. DESOXIMETASONE [Suspect]
     Active Substance: DESOXIMETASONE
     Dosage: UNK
     Route: 061
  252. DESOXIMETASONE [Suspect]
     Active Substance: DESOXIMETASONE
     Dosage: 25 MILLIGRAM (1 EVERY 1 DAYS)
     Route: 061
  253. DIPHENHYDRAMINE [Suspect]
     Active Substance: DIPHENHYDRAMINE
     Indication: Product used for unknown indication
     Dosage: UNK
     Route: 065
  254. DOXYCYCLINE [Suspect]
     Active Substance: DOXYCYCLINE
     Indication: Rheumatoid arthritis
     Dosage: UNK (ENDOCERVICAL)
     Route: 065
  255. EMEND [Suspect]
     Active Substance: APREPITANT
     Indication: Rheumatoid arthritis
     Dosage: 2000 MILLIGRAM (1 EVERY 1 DAY)
     Route: 048
  256. EMEND [Suspect]
     Active Substance: APREPITANT
     Indication: Product used for unknown indication
     Dosage: UNK
     Route: 065
  257. ERGOCALCIFEROL [Suspect]
     Active Substance: ERGOCALCIFEROL
     Indication: Rheumatoid arthritis
     Dosage: UNK
     Route: 065
  258. ETHINYL ESTRADIOL\NORETHINDRONE [Suspect]
     Active Substance: ETHINYL ESTRADIOL\NORETHINDRONE
     Indication: Product used for unknown indication
     Dosage: UNK
     Route: 065
  259. FLUMETHASONE PIVALATE [Suspect]
     Active Substance: FLUMETHASONE PIVALATE
     Indication: Rheumatoid arthritis
     Dosage: 10 MILLIGRAM (1 EVERY 1 DAYS)
     Route: 065
  260. FLUMETHASONE PIVALATE [Suspect]
     Active Substance: FLUMETHASONE PIVALATE
     Dosage: UNK
     Route: 065
  261. FOLIC ACID [Suspect]
     Active Substance: FOLIC ACID
     Indication: Rheumatoid arthritis
     Dosage: UNK (INTRACARDIC)
     Route: 065
  262. FOLIC ACID [Suspect]
     Active Substance: FOLIC ACID
     Dosage: UNK
     Route: 058
  263. FOLIC ACID [Suspect]
     Active Substance: FOLIC ACID
     Dosage: 1 GRAM
     Route: 065
  264. FOLIC ACID [Suspect]
     Active Substance: FOLIC ACID
     Dosage: 0.5 GRAM
     Route: 065
  265. FOLIC ACID [Suspect]
     Active Substance: FOLIC ACID
     Dosage: 1 GRAM
     Route: 058
  266. FOLIC ACID [Suspect]
     Active Substance: FOLIC ACID
     Dosage: 25 MILLIGRAM
     Route: 065
  267. FOLIC ACID [Suspect]
     Active Substance: FOLIC ACID
     Dosage: 500 GRAM
     Route: 048
  268. FOLIC ACID [Suspect]
     Active Substance: FOLIC ACID
     Dosage: 3 MILLIGRAM
     Route: 065
  269. FOLIC ACID [Suspect]
     Active Substance: FOLIC ACID
     Dosage: 5 MILLIGRAM
     Route: 065
  270. FOLIC ACID [Suspect]
     Active Substance: FOLIC ACID
     Dosage: 50 MILLIGRAM
     Route: 065
  271. FOLIC ACID [Suspect]
     Active Substance: FOLIC ACID
     Dosage: 500 GRAM
     Route: 048
  272. FOLIC ACID [Suspect]
     Active Substance: FOLIC ACID
     Dosage: UNK
     Route: 016
  273. FOLIC ACID [Suspect]
     Active Substance: FOLIC ACID
     Dosage: 0.5 MILLIGRAM
     Route: 065
  274. FOLIC ACID [Suspect]
     Active Substance: FOLIC ACID
     Dosage: 500 MILLIGRAM
     Route: 065
  275. FOLIC ACID [Suspect]
     Active Substance: FOLIC ACID
     Dosage: 1 MILLIGRAM
     Route: 065
  276. FOLIC ACID [Suspect]
     Active Substance: FOLIC ACID
     Dosage: 1 MILLIGRAM
     Route: 058
  277. FOLIC ACID [Suspect]
     Active Substance: FOLIC ACID
     Dosage: 15 MILLIGRAM
     Route: 058
  278. FOLIC ACID [Suspect]
     Active Substance: FOLIC ACID
     Dosage: UNK
     Route: 048
  279. FOLIC ACID [Suspect]
     Active Substance: FOLIC ACID
     Dosage: 25 MILLIGRAM
     Route: 048
  280. FOLIC ACID [Suspect]
     Active Substance: FOLIC ACID
     Dosage: 5 MILLIGRAM
     Route: 048
  281. FOLIC ACID [Suspect]
     Active Substance: FOLIC ACID
     Dosage: 1 MILLIGRAM
     Route: 058
  282. FOLIC ACID [Suspect]
     Active Substance: FOLIC ACID
     Dosage: 5 MILLIGRAM
     Route: 048
  283. FOLIC ACID [Suspect]
     Active Substance: FOLIC ACID
     Dosage: 25 MILLIGRAM
     Route: 048
  284. FOSAMAX [Suspect]
     Active Substance: ALENDRONATE SODIUM
     Indication: Rheumatoid arthritis
     Dosage: 1 MILLIGRAM
     Route: 048
  285. FOSAMAX [Suspect]
     Active Substance: ALENDRONATE SODIUM
     Dosage: UNK
     Route: 048
  286. FOSAMAX [Suspect]
     Active Substance: ALENDRONATE SODIUM
     Dosage: UNK
     Route: 048
  287. FOSAMAX [Suspect]
     Active Substance: ALENDRONATE SODIUM
     Dosage: TABLET
     Route: 065
  288. GLUCOSAMINE [Suspect]
     Active Substance: GLUCOSAMINE
     Indication: Rheumatoid arthritis
     Dosage: UNK
     Route: 048
  289. HUMIRA [Suspect]
     Active Substance: ADALIMUMAB
     Indication: Rheumatoid arthritis
     Dosage: 40 MILLIGRAM
     Route: 058
  290. HUMIRA [Suspect]
     Active Substance: ADALIMUMAB
     Dosage: UNK(SOLUTION SUBCUTANEOUS)
     Route: 058
  291. HUMIRA [Suspect]
     Active Substance: ADALIMUMAB
     Dosage: 400 MILLIGRAM
     Route: 058
  292. HUMIRA [Suspect]
     Active Substance: ADALIMUMAB
     Dosage: 1 MILLIGRAM
     Route: 058
  293. HUMIRA [Suspect]
     Active Substance: ADALIMUMAB
     Dosage: UNK
     Route: 065
  294. HUMIRA [Suspect]
     Active Substance: ADALIMUMAB
     Dosage: 4 MILLIGRAM
     Route: 058
  295. HYALURONIDASE [Suspect]
     Active Substance: HYALURONIDASE
     Indication: Product used for unknown indication
     Dosage: UNK
     Route: 065
  296. HYDROCORTISONE [Suspect]
     Active Substance: HYDROCORTISONE
     Indication: Rheumatoid arthritis
     Dosage: UNK
     Route: 058
  297. HYDROCORTISONE [Suspect]
     Active Substance: HYDROCORTISONE
     Dosage: UNK (CUTANEOUS)
     Route: 065
  298. HYDROCORTISONE [Suspect]
     Active Substance: HYDROCORTISONE
     Dosage: UNK
     Route: 048
  299. HYDROCORTISONE [Suspect]
     Active Substance: HYDROCORTISONE
     Dosage: 25 MILLIGRAM
     Route: 048
  300. HYDROCORTISONE [Suspect]
     Active Substance: HYDROCORTISONE
     Dosage: 25 MILLIGRAM
     Route: 065
  301. HYDROCORTISONE [Suspect]
     Active Substance: HYDROCORTISONE
     Dosage: UNK
     Route: 065
  302. HYDROCORTISONE BUTYRATE [Suspect]
     Active Substance: HYDROCORTISONE BUTYRATE
     Indication: Rheumatoid arthritis
     Dosage: UNK
     Route: 065
  303. HYDROCORTISONE SODIUM SUCCINATE [Suspect]
     Active Substance: HYDROCORTISONE SODIUM SUCCINATE
     Indication: Rheumatoid arthritis
     Dosage: UNK
     Route: 065
  304. HYDROCORTISONE SODIUM SUCCINATE [Suspect]
     Active Substance: HYDROCORTISONE SODIUM SUCCINATE
     Dosage: UNK
     Route: 048
  305. HYDROXYCHLOROQUINE [Suspect]
     Active Substance: HYDROXYCHLOROQUINE
     Indication: Rheumatoid arthritis
     Dosage: UNK
     Route: 065
  306. HYDROXYCHLOROQUINE [Suspect]
     Active Substance: HYDROXYCHLOROQUINE
     Indication: Systemic lupus erythematosus
     Dosage: UNK
     Route: 048
  307. HYDROXYCHLOROQUINE [Suspect]
     Active Substance: HYDROXYCHLOROQUINE
     Dosage: UNK (ENDOCERVICAL)
     Route: 065
  308. HYDROXYCHLOROQUINE [Suspect]
     Active Substance: HYDROXYCHLOROQUINE
     Dosage: UNK
     Route: 065
  309. HYDROXYCHLOROQUINE [Suspect]
     Active Substance: HYDROXYCHLOROQUINE
     Dosage: UNK
     Route: 048
  310. HYDROXYCHLOROQUINE [Suspect]
     Active Substance: HYDROXYCHLOROQUINE
     Dosage: 400 MILLIGRAM  (1 EVENRY 1 DAYS)
     Route: 048
  311. HYDROXYCHLOROQUINE [Suspect]
     Active Substance: HYDROXYCHLOROQUINE
     Dosage: 400 MILLIGRAM  (1 EVENRY 1 DAYS)
     Route: 065
  312. HYDROXYCHLOROQUINE [Suspect]
     Active Substance: HYDROXYCHLOROQUINE
     Dosage: 400 MILLIGRAM  (1 EVENRY 1 DAYS)
     Route: 066
  313. HYDROXYCHLOROQUINE [Suspect]
     Active Substance: HYDROXYCHLOROQUINE
     Dosage: 200 MILLIGRAM  (2 EVENRY 1 DAYS)
     Route: 066
  314. HYDROXYCHLOROQUINE [Suspect]
     Active Substance: HYDROXYCHLOROQUINE
     Dosage: ENDOCERVICAL USE
     Route: 065
  315. HYDROXYCHLOROQUINE [Suspect]
     Active Substance: HYDROXYCHLOROQUINE
     Dosage: 40 MILLIGRAM
     Route: 048
  316. HYDROXYCHLOROQUINE SULFATE [Suspect]
     Active Substance: HYDROXYCHLOROQUINE SULFATE
     Indication: Rheumatoid arthritis
     Dosage: UNK
     Route: 065
  317. HYDROXYCHLOROQUINE SULFATE [Suspect]
     Active Substance: HYDROXYCHLOROQUINE SULFATE
     Dosage: 400 MILLIGRAM (1 EVENRY 1 DAYS)
     Route: 065
  318. HYDROXYCHLOROQUINE SULFATE [Suspect]
     Active Substance: HYDROXYCHLOROQUINE SULFATE
     Dosage: 400 MILLIGRAM  (1 EVENRY 1 DAYS)
     Route: 050
  319. HYDROXYCHLOROQUINE SULFATE [Suspect]
     Active Substance: HYDROXYCHLOROQUINE SULFATE
     Dosage: 40 MILLIGRAM  (1 EVENRY 1 DAYS)
     Route: 050
  320. HYDROXYCHLOROQUINE SULFATE [Suspect]
     Active Substance: HYDROXYCHLOROQUINE SULFATE
     Dosage: UNK
     Route: 048
  321. HYDROXYCHLOROQUINE SULFATE [Suspect]
     Active Substance: HYDROXYCHLOROQUINE SULFATE
     Dosage: 420 MILLIGRAM  (1 EVENRY 1 DAYS)
     Route: 065
  322. HYDROXYCHLOROQUINE SULFATE [Suspect]
     Active Substance: HYDROXYCHLOROQUINE SULFATE
     Dosage: 400 MILLIGRAM  (1 EVENRY 1 DAYS)
     Route: 048
  323. HYDROXYCHLOROQUINE SULFATE [Suspect]
     Active Substance: HYDROXYCHLOROQUINE SULFATE
     Dosage: UNK
     Route: 016
  324. HYDROXYCHLOROQUINE SULFATE [Suspect]
     Active Substance: HYDROXYCHLOROQUINE SULFATE
     Dosage: UNK
     Route: 048
  325. HYDROXYCHLOROQUINE SULFATE [Suspect]
     Active Substance: HYDROXYCHLOROQUINE SULFATE
     Dosage: (1 EVENRY 1 DAYS)
     Route: 065
  326. HYDROXYCHLOROQUINE SULFATE [Suspect]
     Active Substance: HYDROXYCHLOROQUINE SULFATE
     Dosage: 5 MILLIGRAM
     Route: 048
  327. HYDROXYCHLOROQUINE SULFATE [Suspect]
     Active Substance: HYDROXYCHLOROQUINE SULFATE
     Dosage: 40 MILLIGRAM
     Route: 048
  328. HYDROXYCHLOROQUINE SULFATE [Suspect]
     Active Substance: HYDROXYCHLOROQUINE SULFATE
     Dosage: 400 MILLIGRAM  (1 EVENRY 1 DAYS)
     Route: 048
  329. HYDROXYCHLOROQUINE SULFATE [Suspect]
     Active Substance: HYDROXYCHLOROQUINE SULFATE
     Dosage: 400 MILLIGRAM  (1 EVENRY 1 DAYS)
     Route: 065
  330. HYDROXYCHLOROQUINE SULFATE [Suspect]
     Active Substance: HYDROXYCHLOROQUINE SULFATE
     Dosage: 420 MILLIGRAM  (1 EVENRY 1 DAYS)
     Route: 048
  331. HYDROXYCHLOROQUINE SULFATE [Suspect]
     Active Substance: HYDROXYCHLOROQUINE SULFATE
     Dosage: 400 MILLIGRAM  (1 EVENRY 1 DAYS)
     Route: 066
  332. ISOPROPYL ALCOHOL [Suspect]
     Active Substance: ISOPROPYL ALCOHOL
     Indication: Rheumatoid arthritis
     Dosage: UNK (LIQUID TOPICAL)
     Route: 058
  333. ISOPROPYL ALCOHOL [Suspect]
     Active Substance: ISOPROPYL ALCOHOL
     Dosage: UNK (LIQUID TOPICAL)
     Route: 061
  334. CLIOQUINOL\FLUMETHASONE [Suspect]
     Active Substance: CLIOQUINOL\FLUMETHASONE
     Indication: Product used for unknown indication
     Dosage: UNK
     Route: 065
  335. CLIOQUINOL\FLUMETHASONE [Suspect]
     Active Substance: CLIOQUINOL\FLUMETHASONE
     Dosage: UNK
     Route: 065
  336. LYRICA [Suspect]
     Active Substance: PREGABALIN
     Indication: Fibromyalgia
     Dosage: UNK
     Route: 048
  337. MAGNESIUM [Suspect]
     Active Substance: MAGNESIUM
     Indication: Product used for unknown indication
     Dosage: UNK
     Route: 065
  338. MAGNESIUM [Suspect]
     Active Substance: MAGNESIUM
     Dosage: 10 MILLIGRAM
     Route: 048
  339. MELOXICAM [Suspect]
     Active Substance: MELOXICAM
     Indication: Product used for unknown indication
     Dosage: UNK
     Route: 065
  340. MELOXICAM [Suspect]
     Active Substance: MELOXICAM
     Dosage: 10 MILLIGRAM
     Route: 048
  341. MELOXICAM [Suspect]
     Active Substance: MELOXICAM
     Dosage: 10 MILLIGRAM
     Route: 048
  342. MELOXICAM [Suspect]
     Active Substance: MELOXICAM
     Dosage: UNK
     Route: 065
  343. METHOTREXATE [Suspect]
     Active Substance: METHOTREXATE
     Indication: Rheumatoid arthritis
     Dosage: 2 GRAM
     Route: 065
  344. METHOTREXATE [Suspect]
     Active Substance: METHOTREXATE
     Dosage: 25 MILLIGRAM
     Route: 048
  345. METHOTREXATE [Suspect]
     Active Substance: METHOTREXATE
     Dosage: 225 MILLIGRAM
     Route: 048
  346. METHOTREXATE [Suspect]
     Active Substance: METHOTREXATE
     Dosage: 20 MILLIGRAM
     Route: 048
  347. METHOTREXATE [Suspect]
     Active Substance: METHOTREXATE
     Dosage: 25 MILLIGRAM
     Route: 048
  348. METHOTREXATE [Suspect]
     Active Substance: METHOTREXATE
     Dosage: UNK (INTRACARDIC)
     Route: 065
  349. METHOTREXATE [Suspect]
     Active Substance: METHOTREXATE
     Dosage: 15 MILLIGRAM
     Route: 048
  350. METHOTREXATE [Suspect]
     Active Substance: METHOTREXATE
     Dosage: 1 GRAM
     Route: 048
  351. METHOTREXATE [Suspect]
     Active Substance: METHOTREXATE
     Dosage: 20 MILLIGRAM, (1 EVERY ONE DAYS)
     Route: 048
  352. METHOTREXATE [Suspect]
     Active Substance: METHOTREXATE
     Dosage: 20 MILLIGRAM
     Route: 065
  353. METHOTREXATE [Suspect]
     Active Substance: METHOTREXATE
     Dosage: UNK
     Route: 058
  354. METHOTREXATE [Suspect]
     Active Substance: METHOTREXATE
     Dosage: UNK
     Route: 048
  355. METHOTREXATE [Suspect]
     Active Substance: METHOTREXATE
     Dosage: UNK
     Route: 065
  356. METHOTREXATE [Suspect]
     Active Substance: METHOTREXATE
     Dosage: 25 MILLIGRAM (1 EVERY ONE WEEKS)
     Route: 048
  357. METHOTREXATE [Suspect]
     Active Substance: METHOTREXATE
     Dosage: 25 MILLIGRAM (1 EVERY ONE DAYS)
     Route: 065
  358. METHOTREXATE [Suspect]
     Active Substance: METHOTREXATE
     Dosage: 20 MILLIGRAM (1 EVERY ONE DAYS)
     Route: 048
  359. METHOTREXATE [Suspect]
     Active Substance: METHOTREXATE
     Dosage: (1 EVERY ONE DAYS)
     Route: 048
  360. METHOTREXATE [Suspect]
     Active Substance: METHOTREXATE
     Dosage: 2 DOSAGE FORM (1 EVERY ONE DAYS)
     Route: 048
  361. METHOTREXATE [Suspect]
     Active Substance: METHOTREXATE
     Dosage: 25 MILLIGRAM
     Route: 065
  362. METHOTREXATE [Suspect]
     Active Substance: METHOTREXATE
     Dosage: 15 MILLIGRAM
     Route: 065
  363. METHOTREXATE [Suspect]
     Active Substance: METHOTREXATE
     Dosage: 1 MILLIGRAM
     Route: 065
  364. METHOTREXATE [Suspect]
     Active Substance: METHOTREXATE
     Dosage: 1 DOSAGE FORM
     Route: 048
  365. METHOTREXATE [Suspect]
     Active Substance: METHOTREXATE
     Dosage: 20 MILLIGRAM
     Route: 058
  366. METHOTREXATE [Suspect]
     Active Substance: METHOTREXATE
     Dosage: 40 MILLIGRAM
     Route: 048
  367. METHOTREXATE [Suspect]
     Active Substance: METHOTREXATE
     Dosage: 25 MILLIGRAM
     Route: 048
  368. METHOTREXATE [Suspect]
     Active Substance: METHOTREXATE
     Dosage: 15 MILLIGRAM (1 EVERY 1 DAYS), CAPSULE HARD
     Route: 048
  369. METHOTREXATE [Suspect]
     Active Substance: METHOTREXATE
     Dosage: 2 GRAM (1 EVERY 1 DAYS), CAPSULE HARD
     Route: 065
  370. METHOTREXATE [Suspect]
     Active Substance: METHOTREXATE
     Dosage: 2 MILLIGRAM  (1 EVERY 1 DAYS), CONCENTARTE FOR SOLUTION FOR INFUSION
     Route: 065
  371. METHOTREXATE [Suspect]
     Active Substance: METHOTREXATE
     Dosage: 25 MILLIGRAM  (1 EVERY 1 DAYS), CONCENTARTE FOR SOLUTION FOR INFUSION
     Route: 065
  372. METHOTREXATE [Suspect]
     Active Substance: METHOTREXATE
     Dosage: CONCENTARTE FOR SOLUTION FOR INFUSION
     Route: 065
  373. METHOTREXATE [Suspect]
     Active Substance: METHOTREXATE
     Dosage: 25 MILLIGRAM (1 EVERY 1 DAYS), CAPSULE HARD
     Route: 048
  374. METHOTREXATE [Suspect]
     Active Substance: METHOTREXATE
     Dosage: 20 MILLIGRAM (1 EVERY 1 DAYS), CAPSULE HARD
     Route: 048
  375. METHOTREXATE [Suspect]
     Active Substance: METHOTREXATE
     Dosage: 20 MILLIGRAM (1 EVERY 1 DAYS), CAPSULE HARD
     Route: 048
  376. METHOTREXATE [Suspect]
     Active Substance: METHOTREXATE
     Dosage: 20 MILLIGRAM (1 EVERY 1 DAYS), CAPSULE HARD
     Route: 065
  377. METHOTREXATE [Suspect]
     Active Substance: METHOTREXATE
     Dosage: UNK
     Route: 040
  378. METHOTREXATE [Suspect]
     Active Substance: METHOTREXATE
     Dosage: 25 MILLIGRAM, QD
     Route: 048
  379. METHOTREXATE [Suspect]
     Active Substance: METHOTREXATE
     Dosage: 25 MILLIGRAM
     Route: 013
  380. METHOTREXATE [Suspect]
     Active Substance: METHOTREXATE
     Dosage: 25 MILLIGRAM
     Route: 013
  381. METHOTREXATE [Suspect]
     Active Substance: METHOTREXATE
     Dosage: 20 MILLIGRAM
     Route: 013
  382. METHOTREXATE [Suspect]
     Active Substance: METHOTREXATE
     Dosage: UNK
     Route: 048
  383. METHOTREXATE [Suspect]
     Active Substance: METHOTREXATE
     Dosage: 20 MILLIGRAM
     Route: 048
  384. METHOTREXATE [Suspect]
     Active Substance: METHOTREXATE
     Dosage: 25 MILLIGRAM
     Route: 065
  385. METHOTREXATE [Suspect]
     Active Substance: METHOTREXATE
     Dosage: 20 MILLIGRAM
     Route: 048
  386. METHOTREXATE [Suspect]
     Active Substance: METHOTREXATE
     Dosage: 25 MILLIGRAM
     Route: 065
  387. METHOTREXATE [Suspect]
     Active Substance: METHOTREXATE
     Dosage: 25 MILLIGRAM
     Route: 058
  388. MORPHINE [Suspect]
     Active Substance: MORPHINE
     Indication: Rheumatoid arthritis
     Dosage: UNK
     Route: 048
  389. NAPROXEN SODIUM [Suspect]
     Active Substance: NAPROXEN SODIUM
     Indication: Rheumatoid arthritis
     Dosage: 500 MILLIGRAM (2 EVERY 1 DAYS)
     Route: 065
  390. NAPROXEN SODIUM [Suspect]
     Active Substance: NAPROXEN SODIUM
     Indication: Headache
     Dosage: 500 MILLIGRAM
     Route: 065
  391. NAPROXEN SODIUM [Suspect]
     Active Substance: NAPROXEN SODIUM
     Dosage: 500 MILLIGRAM (1 EVERY 5 DAYS)
     Route: 065
  392. NAPROXEN SODIUM [Suspect]
     Active Substance: NAPROXEN SODIUM
     Dosage: UNK
     Route: 065
  393. NAPROXEN SODIUM [Suspect]
     Active Substance: NAPROXEN SODIUM
     Dosage: 200 MILLIGRAM (2 EVERY 1 DAYS)
     Route: 065
  394. ORENCIA [Suspect]
     Active Substance: ABATACEPT
     Indication: Rheumatoid arthritis
     Dosage: UNK
     Route: 058
  395. ORENCIA [Suspect]
     Active Substance: ABATACEPT
     Dosage: SOLUTION FOR INFUSION
     Route: 040
  396. ORENCIA [Suspect]
     Active Substance: ABATACEPT
     Dosage: UNK
     Route: 065
  397. ORENCIA [Suspect]
     Active Substance: ABATACEPT
     Dosage: SOLUTION FOR INFUSION
     Route: 067
  398. ORENCIA [Suspect]
     Active Substance: ABATACEPT
     Dosage: 1 DOSAGE FORM
     Route: 040
  399. ORENCIA [Suspect]
     Active Substance: ABATACEPT
     Dosage: 125 MILLIGRAM
     Route: 058
  400. ORENCIA [Suspect]
     Active Substance: ABATACEPT
     Dosage: 125 MILLIGRAM (1 EVERY 1 WEEKS)
     Route: 058
  401. ORENCIA [Suspect]
     Active Substance: ABATACEPT
     Dosage: 25 MILLIGRAM
     Route: 058
  402. ORENCIA [Suspect]
     Active Substance: ABATACEPT
     Dosage: 30 MILLIGRAM (1 EVERY 5 DAYS)
     Route: 048
  403. ORENCIA [Suspect]
     Active Substance: ABATACEPT
     Dosage: 17.857 MILLIGRAM (1 EVERY 1 DAYS)
     Route: 058
  404. ORENCIA [Suspect]
     Active Substance: ABATACEPT
     Dosage: UNK
     Route: 067
  405. ORENCIA [Suspect]
     Active Substance: ABATACEPT
     Dosage: UNK
     Route: 040
  406. OXYCODONE AND ACETAMINOPHEN [Suspect]
     Active Substance: ACETAMINOPHEN\OXYCODONE HYDROCHLORIDE
     Indication: Product used for unknown indication
     Dosage: UNK
     Route: 065
  407. OXYCODONE AND ACETAMINOPHEN [Suspect]
     Active Substance: ACETAMINOPHEN\OXYCODONE HYDROCHLORIDE
     Dosage: 17.86 MILLIGRAM
     Route: 065
  408. PANTOPRAZOLE SODIUM [Suspect]
     Active Substance: PANTOPRAZOLE SODIUM
     Indication: Product used for unknown indication
     Dosage: UNK (TABLET, ENTERIC COATED)
     Route: 065
  409. PANTOPRAZOLE [Suspect]
     Active Substance: PANTOPRAZOLE
     Indication: Dyspepsia
     Dosage: UNK
     Route: 065
  410. PANTOPRAZOLE [Suspect]
     Active Substance: PANTOPRAZOLE
     Dosage: UNK
     Route: 065
  411. PANTOPRAZOLE [Suspect]
     Active Substance: PANTOPRAZOLE
     Dosage: UNK
     Route: 016
  412. PANTOPRAZOLE [Suspect]
     Active Substance: PANTOPRAZOLE
     Dosage: ENDOCERVICAL
     Route: 065
  413. PARA-AMINOSALICYLIC ACID [Suspect]
     Active Substance: AMINOSALICYLIC ACID
     Indication: Product used for unknown indication
     Dosage: UNK
     Route: 065
  414. PERCOCET [Suspect]
     Active Substance: ACETAMINOPHEN\OXYCODONE HYDROCHLORIDE
     Indication: Product used for unknown indication
     Dosage: 17.857 MILLIGRAM
     Route: 065
  415. PHTHALYLSULFATHIAZOLE [Suspect]
     Active Substance: PHTHALYLSULFATHIAZOLE
     Indication: Rheumatoid arthritis
     Dosage: UNK
     Route: 065
  416. PHTHALYLSULFATHIAZOLE [Suspect]
     Active Substance: PHTHALYLSULFATHIAZOLE
     Dosage: UNK
     Route: 048
  417. PHTHALYLSULFATHIAZOLE [Suspect]
     Active Substance: PHTHALYLSULFATHIAZOLE
     Dosage: 500 MILLIGRAM (1 EVERY 0.5 DAYS)
     Route: 048
  418. PHTHALYLSULFATHIAZOLE [Suspect]
     Active Substance: PHTHALYLSULFATHIAZOLE
     Dosage: 400 MILLIGRAM (1 EVERY 1 DAYS)
     Route: 048
  419. PHTHALYLSULFATHIAZOLE [Suspect]
     Active Substance: PHTHALYLSULFATHIAZOLE
     Dosage: 1000 MILLIGRAM (1 EVERY 0.5 DAYS)
     Route: 048
  420. PHTHALYLSULFATHIAZOLE [Suspect]
     Active Substance: PHTHALYLSULFATHIAZOLE
     Dosage: UNK
     Route: 040
  421. PHTHALYLSULFATHIAZOLE [Suspect]
     Active Substance: PHTHALYLSULFATHIAZOLE
     Dosage: 500 MILLIGRAM
     Route: 048
  422. PHTHALYLSULFATHIAZOLE [Suspect]
     Active Substance: PHTHALYLSULFATHIAZOLE
     Dosage: 400 MILLIGRAM
     Route: 065
  423. PHTHALYLSULFATHIAZOLE [Suspect]
     Active Substance: PHTHALYLSULFATHIAZOLE
     Dosage: 2000 MILLIGRAM
     Route: 048
  424. PHTHALYLSULFATHIAZOLE [Suspect]
     Active Substance: PHTHALYLSULFATHIAZOLE
     Dosage: 1000 MILLIGRAM
     Route: 048
  425. PHTHALYLSULFATHIAZOLE [Suspect]
     Active Substance: PHTHALYLSULFATHIAZOLE
     Dosage: 1000 MILLIGRAM
     Route: 065
  426. PIROXICAM [Suspect]
     Active Substance: PIROXICAM
     Indication: Product used for unknown indication
     Dosage: UNK
     Route: 065
  427. PLAQUENIL [Suspect]
     Active Substance: HYDROXYCHLOROQUINE SULFATE
     Indication: Rheumatoid arthritis
     Dosage: 40 MILLIGRAM (1 EVERY 1 DAYS)
     Route: 065
  428. PLAQUENIL [Suspect]
     Active Substance: HYDROXYCHLOROQUINE SULFATE
     Dosage: 1 DOSAGE FORM (1 EVERY 1 DAYS)
     Route: 065
  429. PLAQUENIL [Suspect]
     Active Substance: HYDROXYCHLOROQUINE SULFATE
     Dosage: 400 MILLIGRAM (1 EVERY 1 DAYS)
     Route: 065
  430. PLAQUENIL [Suspect]
     Active Substance: HYDROXYCHLOROQUINE SULFATE
     Dosage: 40 MILLIGRAM (1 EVERY 1 DAYS)
     Route: 048
  431. PLAQUENIL [Suspect]
     Active Substance: HYDROXYCHLOROQUINE SULFATE
     Dosage: 420 MILLIGRAM
     Route: 048
  432. PLAQUENIL [Suspect]
     Active Substance: HYDROXYCHLOROQUINE SULFATE
     Dosage: 400 MILLIGRAM
     Route: 048
  433. PLAQUENIL [Suspect]
     Active Substance: HYDROXYCHLOROQUINE SULFATE
     Dosage: 40 MILLIGRAM
     Route: 048
  434. PLAQUENIL [Suspect]
     Active Substance: HYDROXYCHLOROQUINE SULFATE
     Dosage: 420 MILLIGRAM
     Route: 048
  435. PLAQUENIL [Suspect]
     Active Substance: HYDROXYCHLOROQUINE SULFATE
     Dosage: 400 MILLIGRAM
     Route: 065
  436. PLAQUENIL [Suspect]
     Active Substance: HYDROXYCHLOROQUINE SULFATE
     Dosage: 420 MILLIGRAM
     Route: 065
  437. PLAQUENIL [Suspect]
     Active Substance: HYDROXYCHLOROQUINE SULFATE
     Dosage: 1 DOSAGE FORM
     Route: 065
  438. PREVACID [Suspect]
     Active Substance: LANSOPRAZOLE
     Indication: Product used for unknown indication
     Dosage: UNK
     Route: 065
  439. PSEUDOEPHEDRINE [Suspect]
     Active Substance: PSEUDOEPHEDRINE
     Indication: Product used for unknown indication
     Dosage: UNK
     Route: 065
  440. QUETIAPINE [Suspect]
     Active Substance: QUETIAPINE
     Indication: Product used for unknown indication
     Dosage: UNK
     Route: 065
  441. RAMIPRIL [Suspect]
     Active Substance: RAMIPRIL
     Indication: Product used for unknown indication
     Dosage: UNK
     Route: 065
  442. UNSPECIFIED INGREDIENT [Suspect]
     Active Substance: UNSPECIFIED INGREDIENT
     Indication: Urticaria
     Dosage: 10 MILLIGRAM
     Route: 065
  443. UNSPECIFIED INGREDIENT [Suspect]
     Active Substance: UNSPECIFIED INGREDIENT
     Indication: Rheumatoid arthritis
     Dosage: 25 MILLIGRAM
     Route: 065
  444. UNSPECIFIED INGREDIENT [Suspect]
     Active Substance: UNSPECIFIED INGREDIENT
     Dosage: 10 MILLIGRAM
     Route: 048
  445. UNSPECIFIED INGREDIENT [Suspect]
     Active Substance: UNSPECIFIED INGREDIENT
     Dosage: 25 MILLIGRAM (ENDOCERVICAL)
     Route: 065
  446. UNSPECIFIED INGREDIENT [Suspect]
     Active Substance: UNSPECIFIED INGREDIENT
     Dosage: UNK
     Route: 065
  447. UNSPECIFIED INGREDIENT [Suspect]
     Active Substance: UNSPECIFIED INGREDIENT
     Dosage: UNK
     Route: 016
  448. UNSPECIFIED INGREDIENT [Suspect]
     Active Substance: UNSPECIFIED INGREDIENT
     Dosage: UNK
     Route: 040
  449. UNSPECIFIED INGREDIENT [Suspect]
     Active Substance: UNSPECIFIED INGREDIENT
     Dosage: 10 MILLIGRAM (1 EVERY 1 DAYS)
     Route: 048
  450. UNSPECIFIED INGREDIENT [Suspect]
     Active Substance: UNSPECIFIED INGREDIENT
     Dosage: 10 MILLIGRAM
     Route: 065
  451. UNSPECIFIED INGREDIENT [Suspect]
     Active Substance: UNSPECIFIED INGREDIENT
     Dosage: 25 MILLIGRAM
     Route: 048
  452. UNSPECIFIED INGREDIENT [Suspect]
     Active Substance: UNSPECIFIED INGREDIENT
     Dosage: UNK
     Route: 048
  453. REMICADE [Suspect]
     Active Substance: INFLIXIMAB
     Indication: Rheumatoid arthritis
     Dosage: UNK (POWDER FOR SOLUTION INTRAVENOUS)
     Route: 042
  454. REMICADE [Suspect]
     Active Substance: INFLIXIMAB
     Indication: Colitis ulcerative
     Dosage: 400 MILLIGRAM (POWDER FOR SOLUTION INTRAVENOUS)
     Route: 042
  455. REMICADE [Suspect]
     Active Substance: INFLIXIMAB
     Indication: Psoriasis
     Dosage: 500 MILLIGRAM (POWDER FOR SOLUTION INTRAVENOUS)
     Route: 042
  456. REMICADE [Suspect]
     Active Substance: INFLIXIMAB
     Indication: Crohn^s disease
     Dosage: 5 MILLIGRAM (POWDER FOR SOLUTION INTRAVENOUS)
     Route: 042
  457. REMICADE [Suspect]
     Active Substance: INFLIXIMAB
     Indication: Psoriatic arthropathy
     Dosage: 300 MILLIGRAM (POWDER FOR SOLUTION INTRAVENOUS)
     Route: 065
  458. REMICADE [Suspect]
     Active Substance: INFLIXIMAB
     Indication: Ankylosing spondylitis
     Dosage: UNK
     Route: 065
  459. REMICADE [Suspect]
     Active Substance: INFLIXIMAB
     Dosage: UNK
     Route: 065
  460. REMICADE [Suspect]
     Active Substance: INFLIXIMAB
     Dosage: 500 MILLIGRAM
     Route: 040
  461. REMICADE [Suspect]
     Active Substance: INFLIXIMAB
     Dosage: UNK
     Route: 040
  462. REMICADE [Suspect]
     Active Substance: INFLIXIMAB
     Dosage: UNK
     Route: 065
  463. REMICADE [Suspect]
     Active Substance: INFLIXIMAB
     Dosage: UNK
     Route: 065
  464. DIETARY SUPPLEMENT\HERBALS [Suspect]
     Active Substance: DIETARY SUPPLEMENT\HERBALS
     Indication: Product used for unknown indication
     Dosage: UNK
     Route: 048
  465. ALBUTEROL [Suspect]
     Active Substance: ALBUTEROL
     Indication: Product used for unknown indication
     Dosage: UNK
     Route: 065
  466. SIMPONI [Suspect]
     Active Substance: GOLIMUMAB
     Indication: Rheumatoid arthritis
     Dosage: UNK (SOLUTION FOR SUBCUTANEOUS)
     Route: 058
  467. SIMPONI [Suspect]
     Active Substance: GOLIMUMAB
     Indication: Psoriatic arthropathy
     Dosage: 50 MILLIGRAM (SOLUTION FOR SUBCUTANEOUS)
     Route: 058
  468. SIMPONI [Suspect]
     Active Substance: GOLIMUMAB
     Dosage: UNK
     Route: 040
  469. SIMPONI [Suspect]
     Active Substance: GOLIMUMAB
     Dosage: UNK
     Route: 052
  470. SIMPONI [Suspect]
     Active Substance: GOLIMUMAB
     Dosage: UNK
     Route: 058
  471. SULFASALAZINE [Suspect]
     Active Substance: SULFASALAZINE
     Indication: Rheumatoid arthritis
     Dosage: 2000 MILLIGRAM
     Route: 048
  472. SULFASALAZINE [Suspect]
     Active Substance: SULFASALAZINE
     Dosage: 500 MILLIGRAM
     Route: 048
  473. SULFASALAZINE [Suspect]
     Active Substance: SULFASALAZINE
     Dosage: 500 MILLIGRAM
     Route: 065
  474. SULFASALAZINE [Suspect]
     Active Substance: SULFASALAZINE
     Dosage: 1 GRAM (1 EVERY 0.5 DAYS)
     Route: 048
  475. SULFASALAZINE [Suspect]
     Active Substance: SULFASALAZINE
     Dosage: 1 GRAM (1 EVERY 1 DAYS)
     Route: 048
  476. SULFASALAZINE [Suspect]
     Active Substance: SULFASALAZINE
     Dosage: 1000 MILLIGRAM
     Route: 048
  477. SULFASALAZINE [Suspect]
     Active Substance: SULFASALAZINE
     Dosage: 1 GRAM (1 EVERY 0.5 DAYS)
     Route: 048
  478. SULFASALAZINE [Suspect]
     Active Substance: SULFASALAZINE
     Dosage: 200 MILLIGRAM
     Route: 065
  479. SULFASALAZINE [Suspect]
     Active Substance: SULFASALAZINE
     Dosage: UNK, BID
     Route: 048
  480. SULFASALAZINE [Suspect]
     Active Substance: SULFASALAZINE
     Dosage: UNK, QD
     Route: 048
  481. SULFASALAZINE [Suspect]
     Active Substance: SULFASALAZINE
     Dosage: 2000 MILLIGRAM
     Route: 065
  482. SULFASALAZINE [Suspect]
     Active Substance: SULFASALAZINE
     Dosage: 4000 MILLIGRAM, QD
     Route: 065
  483. SULFASALAZINE [Suspect]
     Active Substance: SULFASALAZINE
     Dosage: 1000 MILLIGRAM, BID
     Route: 048
  484. SULFASALAZINE [Suspect]
     Active Substance: SULFASALAZINE
     Dosage: 2 MILLIGRAM
     Route: 048
  485. SULFASALAZINE [Suspect]
     Active Substance: SULFASALAZINE
     Dosage: 200 MILLIGRAM
     Route: 048
  486. SULFASALAZINE [Suspect]
     Active Substance: SULFASALAZINE
     Dosage: 1 GRAM
     Route: 048
  487. SULFASALAZINE [Suspect]
     Active Substance: SULFASALAZINE
     Dosage: UNK
     Route: 065
  488. SULFASALAZINE [Suspect]
     Active Substance: SULFASALAZINE
     Dosage: 1000 MILLIGRAM
     Route: 065
  489. XELJANZ [Suspect]
     Active Substance: TOFACITINIB CITRATE
     Indication: Rheumatoid arthritis
     Dosage: 10 MILLIGRAM
     Route: 048
  490. XELJANZ [Suspect]
     Active Substance: TOFACITINIB CITRATE
     Indication: Product used for unknown indication
     Dosage: 10 MILLIGRAM (1 EVERY 1 DAYS)
     Route: 065
  491. XELJANZ [Suspect]
     Active Substance: TOFACITINIB CITRATE
     Dosage: 5 MILLIGRAM
     Route: 048
  492. XELJANZ [Suspect]
     Active Substance: TOFACITINIB CITRATE
     Dosage: 5 MILLIGRAM
     Route: 065
  493. XELJANZ [Suspect]
     Active Substance: TOFACITINIB CITRATE
     Dosage: 5 MILLIGRAM (2 EVERY 1 DAYS)
     Route: 065
  494. XELJANZ [Suspect]
     Active Substance: TOFACITINIB CITRATE
     Dosage: 5 MILLIGRAM (2 EVERY 1 DAYS)
     Route: 065
  495. XELJANZ [Suspect]
     Active Substance: TOFACITINIB CITRATE
     Dosage: 5 MILLIGRAM (2 EVERY 1 DAYS)
     Route: 065
  496. XELJANZ [Suspect]
     Active Substance: TOFACITINIB CITRATE
     Dosage: 5 MILLIGRAM (2 EVERY 1 DAYS)
     Route: 065
  497. XELJANZ [Suspect]
     Active Substance: TOFACITINIB CITRATE
     Dosage: 10 MILLIGRAM, BID
     Route: 048
  498. XELJANZ [Suspect]
     Active Substance: TOFACITINIB CITRATE
     Dosage: 5 MILLIGRAM, BID
     Route: 048
  499. XELJANZ [Suspect]
     Active Substance: TOFACITINIB CITRATE
     Dosage: 5 MILLIGRAM
     Route: 048
  500. XELJANZ [Suspect]
     Active Substance: TOFACITINIB CITRATE
     Dosage: 10 MILLIGRAM
     Route: 065
  501. XELJANZ [Suspect]
     Active Substance: TOFACITINIB CITRATE
     Dosage: UNK
     Route: 065
  502. XELJANZ [Suspect]
     Active Substance: TOFACITINIB CITRATE
     Dosage: 10 MILLIGRAM
     Route: 065
  503. ZESTRIL [Suspect]
     Active Substance: LISINOPRIL
     Indication: Product used for unknown indication
     Dosage: UNK
     Route: 065
  504. PREDNISONE [Suspect]
     Active Substance: PREDNISONE
     Indication: Rheumatoid arthritis
     Dosage: UNK
     Route: 065
  505. PREDNISONE [Suspect]
     Active Substance: PREDNISONE
     Indication: Condition aggravated
     Dosage: 40 MILLIGRAM
     Route: 048
  506. PREDNISONE [Suspect]
     Active Substance: PREDNISONE
     Dosage: 7.5 MILLIGRAM
     Route: 048
  507. PREDNISONE [Suspect]
     Active Substance: PREDNISONE
     Dosage: UNK
     Route: 065
  508. PREDNISONE [Suspect]
     Active Substance: PREDNISONE
     Dosage: 1 MILLIGRAM (NOT OTHERWISE SPECIFIED)
     Route: 040
  509. PREDNISONE [Suspect]
     Active Substance: PREDNISONE
     Dosage: 5 MILLIGRAM
     Route: 040
  510. PREDNISONE [Suspect]
     Active Substance: PREDNISONE
     Dosage: 200 MILLIGRAM
     Route: 048
  511. PREDNISONE [Suspect]
     Active Substance: PREDNISONE
     Dosage: UNK
     Route: 040
  512. PREDNISONE [Suspect]
     Active Substance: PREDNISONE
     Dosage: 10 MILLIGRAM
     Route: 048
  513. PREDNISONE [Suspect]
     Active Substance: PREDNISONE
     Dosage: 40 MILLIGRAM
     Route: 065
  514. PREDNISONE [Suspect]
     Active Substance: PREDNISONE
     Dosage: 5 MILLIGRAM
     Route: 065
  515. PREDNISONE [Suspect]
     Active Substance: PREDNISONE
     Dosage: 10 MILLIGRAM
     Route: 065
  516. PREDNISONE [Suspect]
     Active Substance: PREDNISONE
     Indication: Rheumatoid arthritis
     Dosage: UNK
     Route: 048
  517. LANSOPRAZOLE [Concomitant]
     Active Substance: LANSOPRAZOLE
     Indication: Rheumatoid arthritis
     Dosage: UNK
     Route: 048
  518. LISINOPRIL [Concomitant]
     Active Substance: LISINOPRIL
     Indication: Product used for unknown indication
     Dosage: UNK
     Route: 048
  519. LORAZEPAM [Concomitant]
     Active Substance: LORAZEPAM
     Indication: Product used for unknown indication
     Dosage: 1 MILLIGRAM
     Route: 065
  520. LORAZEPAM [Concomitant]
     Active Substance: LORAZEPAM
     Dosage: UNK
     Route: 065

REACTIONS (99)
  - Abdominal discomfort [Fatal]
  - Abdominal pain upper [Fatal]
  - Alopecia [Fatal]
  - Anti-cyclic citrullinated peptide antibody positive [Fatal]
  - Anxiety [Fatal]
  - Arthralgia [Fatal]
  - Arthropathy [Fatal]
  - Asthma [Fatal]
  - Blister [Fatal]
  - Blood cholesterol increased [Fatal]
  - Condition aggravated [Fatal]
  - Contraindicated product administered [Fatal]
  - Discomfort [Fatal]
  - Drug ineffective for unapproved indication [Fatal]
  - Drug intolerance [Fatal]
  - Drug tolerance decreased [Fatal]
  - Duodenal ulcer perforation [Fatal]
  - Fibromyalgia [Fatal]
  - General physical health deterioration [Fatal]
  - Glossodynia [Fatal]
  - Headache [Fatal]
  - Helicobacter infection [Fatal]
  - Hepatic enzyme increased [Fatal]
  - Insomnia [Fatal]
  - Incorrect route of product administration [Fatal]
  - Liver disorder [Fatal]
  - Liver disorder [Fatal]
  - Liver injury [Fatal]
  - Lower limb fracture [Fatal]
  - Lower limb fracture [Not Recovered/Not Resolved]
  - Lower respiratory tract infection [Fatal]
  - Lung disorder [Fatal]
  - Lupus-like syndrome [Fatal]
  - Lupus vulgaris [Fatal]
  - Malaise [Fatal]
  - Memory impairment [Fatal]
  - Migraine [Fatal]
  - Mobility decreased [Fatal]
  - Muscle injury [Fatal]
  - Muscle spasms [Fatal]
  - Muscle spasms [Fatal]
  - Muscular weakness [Fatal]
  - Musculoskeletal pain [Fatal]
  - Musculoskeletal stiffness [Fatal]
  - Nasopharyngitis [Fatal]
  - Nausea [Fatal]
  - Night sweats [Fatal]
  - Obesity [Fatal]
  - Oedema peripheral [Fatal]
  - Off label use [Fatal]
  - Osteoarthritis [Fatal]
  - Osteoporosis [Fatal]
  - Pain [Fatal]
  - Pain in extremity [Fatal]
  - Pemphigus [Fatal]
  - Pancreatitis [Fatal]
  - Pericarditis [Fatal]
  - Peripheral swelling [Fatal]
  - Peripheral venous disease [Fatal]
  - Pneumonia [Fatal]
  - Porphyria acute [Fatal]
  - Pruritus [Fatal]
  - Psoriatic arthropathy [Fatal]
  - Pulmonary fibrosis [Fatal]
  - Pyrexia [Fatal]
  - Pyrexia [Fatal]
  - Rash [Fatal]
  - Rash pruritic [Not Recovered/Not Resolved]
  - Rectal haemorrhage [Fatal]
  - Red blood cell sedimentation rate increased [Fatal]
  - Respiratory disorder [Fatal]
  - Respiratory disorder [Fatal]
  - Retinitis [Fatal]
  - Rheumatic fever [Fatal]
  - Rheumatoid arthritis [Fatal]
  - Rheumatoid arthritis [Fatal]
  - Rheumatoid factor positive [Fatal]
  - Road traffic accident [Fatal]
  - Sciatica [Fatal]
  - Sinusitis [Fatal]
  - Sleep disorder [Fatal]
  - Sleep disorder due to a general medical condition [Fatal]
  - Sleep disorder due to general medical condition, insomnia type [Fatal]
  - Stomatitis [Fatal]
  - Swelling [Fatal]
  - Swollen joint count increased [Fatal]
  - Synovitis [Fatal]
  - Systemic lupus erythematosus [Fatal]
  - Type 2 diabetes mellitus [Fatal]
  - Urticaria [Fatal]
  - Visual impairment [Fatal]
  - Vomiting [Fatal]
  - Weight decreased [Fatal]
  - Weight increased [Fatal]
  - Wheezing [Fatal]
  - White blood cell count increased [Fatal]
  - Wound [Fatal]
  - Wound infection [Fatal]
  - X-ray abnormal [Fatal]
